FAERS Safety Report 8209133-5 (Version None)
Quarter: 2012Q1

REPORT INFORMATION
  Report Type: 
  Country: None (occurrence: None)
  Receive Date: 20120314
  Receipt Date: 20120306
  Transmission Date: 20120608
  Serious: Yes (Hospitalization)
  Sender: FDA-Public Use
  Company Number: US-BAYER-2011-121167

PATIENT
  Age: 30 Year
  Sex: Female
  Weight: 70.295 kg

DRUGS (4)
  1. YASMIN [Suspect]
     Indication: CONTRACEPTION
     Dosage: UNK
     Dates: start: 20040808, end: 20080613
  2. IBUPROFEN (ADVIL) [Concomitant]
     Indication: HEADACHE
     Dosage: UNK
     Dates: start: 20080101, end: 20080101
  3. DROSPIRENONE AND ETHINYL ESTRADIOL [Suspect]
     Indication: CONTRACEPTION
     Dosage: UNK
     Dates: start: 20080704, end: 20090312
  4. CALCIUM CARBONATE [Concomitant]
     Dosage: UNK
     Dates: start: 20080101, end: 20080101

REACTIONS (8)
  - CHOLELITHIASIS [None]
  - EMOTIONAL DISTRESS [None]
  - CHOLECYSTITIS ACUTE [None]
  - ANXIETY [None]
  - PAIN [None]
  - BACK PAIN [None]
  - DYSPEPSIA [None]
  - INSOMNIA [None]
